FAERS Safety Report 5842971-2 (Version None)
Quarter: 2008Q3

REPORT INFORMATION
  Report Type: 
  Country: None (occurrence: None)
  Receive Date: 20080813
  Receipt Date: 20080729
  Transmission Date: 20090109
  Serious: Yes (Death)
  Sender: FDA-Public Use
  Company Number: US-JNJFOC-20080102890

PATIENT
  Sex: Male
  Weight: 82.56 kg

DRUGS (22)
  1. TRAMADOL HYDROCHLORIDE [Suspect]
     Route: 048
  2. TRAMADOL HYDROCHLORIDE [Suspect]
     Indication: OSTEOARTHRITIS
     Route: 048
  3. MELOXICAM [Suspect]
     Route: 048
  4. MELOXICAM [Suspect]
     Indication: OSTEOARTHRITIS
     Route: 048
  5. VITAMIN E [Concomitant]
     Route: 065
  6. VITAMIN A [Concomitant]
     Route: 065
  7. C-VITAMIN [Concomitant]
     Route: 065
  8. FISH OIL [Concomitant]
     Route: 065
  9. CALCIUM WITH VITAMIN D [Concomitant]
     Route: 065
  10. TYLENOL [Concomitant]
     Route: 065
  11. PLAVIX [Concomitant]
     Route: 065
  12. ACETYLSALICYLIC ACID SRT [Concomitant]
     Route: 065
  13. ACETYLSALICYLIC ACID SRT [Concomitant]
     Route: 065
  14. PRILOSEC [Concomitant]
     Route: 065
  15. ATENOLOL [Concomitant]
     Route: 065
  16. FELODIPINE [Concomitant]
     Route: 065
  17. ZOCOR [Concomitant]
     Route: 065
  18. PROSCAR [Concomitant]
     Route: 065
  19. TERAZOSIN HCL [Concomitant]
     Route: 065
  20. FOLIC ACID [Concomitant]
     Route: 065
  21. MAGNESIUM SULFATE [Concomitant]
     Route: 065
  22. POTASSIUM CHLORIDE [Concomitant]
     Route: 065

REACTIONS (1)
  - ACUTE MYOCARDIAL INFARCTION [None]
